FAERS Safety Report 21974423 (Version 1)
Quarter: 2023Q1

REPORT INFORMATION
  Report Type: Spontaneous
  Country: US (occurrence: None)
  Receive Date: 20230208
  Receipt Date: 20230208
  Transmission Date: 20230418
  Serious: Yes (Other)
  Sender: FDA-Public Use
  Company Number: None

PATIENT
  Age: 59 Year
  Sex: Female
  Weight: 36.9 kg

DRUGS (1)
  1. ZUBSOLV [Suspect]
     Active Substance: BUPRENORPHINE HYDROCHLORIDE\NALOXONE HYDROCHLORIDE
     Indication: Opiates
     Dosage: OTHER QUANTITY : 2 TABLET(S);?
     Route: 060
     Dates: start: 20220510, end: 20230207

REACTIONS (2)
  - Alopecia [None]
  - Product label issue [None]

NARRATIVE: CASE EVENT DATE: 20220510
